FAERS Safety Report 9423299 (Version 2)
Quarter: 2013Q3

REPORT INFORMATION
  Report Type: Spontaneous
  Country: US (occurrence: US)
  Receive Date: 20130726
  Receipt Date: 20130731
  Transmission Date: 20140515
  Serious: Yes (Hospitalization)
  Sender: FDA-Public Use
  Company Number: US-BAYER-2013-089470

PATIENT
  Age: 42 Year
  Sex: Female

DRUGS (3)
  1. YAZ [Suspect]
     Indication: PREMENSTRUAL DYSPHORIC DISORDER
     Dosage: UNK
     Dates: start: 200903, end: 201007
  2. GIANVI [Suspect]
     Dosage: UNK
     Dates: start: 201007, end: 201107
  3. PRISTIQ [Concomitant]

REACTIONS (1)
  - Pulmonary embolism [None]
